FAERS Safety Report 23815043 (Version 1)
Quarter: 2024Q2

REPORT INFORMATION
  Report Type: Spontaneous
  Country: US (occurrence: None)
  Receive Date: 20240502
  Receipt Date: 20240502
  Transmission Date: 20240716
  Serious: Yes (Life-Threatening, Other)
  Sender: FDA-Public Use
  Company Number: None

PATIENT
  Age: 47 Year
  Sex: Female
  Weight: 133.2 kg

DRUGS (21)
  1. MOUNJARO [Suspect]
     Active Substance: TIRZEPATIDE
     Indication: Diabetes mellitus
     Dates: start: 20230918, end: 20240304
  2. METFORMIN [Concomitant]
     Active Substance: METFORMIN HYDROCHLORIDE
  3. GLIMEPIRIDE [Concomitant]
     Active Substance: GLIMEPIRIDE
  4. LAMICTAL [Concomitant]
     Active Substance: LAMOTRIGINE
  5. TOUJEO [Concomitant]
     Active Substance: INSULIN GLARGINE
  6. OZEMPIC [Concomitant]
     Active Substance: SEMAGLUTIDE
  7. ALPRAZOLAM [Concomitant]
     Active Substance: ALPRAZOLAM
  8. TRAMADOL [Concomitant]
     Active Substance: TRAMADOL\TRAMADOL HYDROCHLORIDE
  9. POTASSIUM [Concomitant]
     Active Substance: POTASSIUM
  10. CGM [Concomitant]
  11. ALLOPURINOL [Concomitant]
     Active Substance: ALLOPURINOL
  12. TRAZODONE [Concomitant]
     Active Substance: TRAZODONE HYDROCHLORIDE
  13. ESOMEPRAZOLE [Concomitant]
     Active Substance: ESOMEPRAZOLE
  14. LOSARTAN [Concomitant]
     Active Substance: LOSARTAN
  15. PRISTIQ (DESVENLAFAXINE) [Concomitant]
  16. FUROSEMIDE [Concomitant]
     Active Substance: FUROSEMIDE
  17. VITAMIN D [Concomitant]
     Active Substance: VITAMIN D NOS
  18. MULTI-VITAMIN [Concomitant]
     Active Substance: .ALPHA.-TOCOPHEROL ACETATE, DL-\ASCORBIC ACID\CYANOCOBALAMIN\FLUORIDE ION\FOLIC ACID\NIACIN\PYRIDOXI
  19. COENZYME Q10 [Concomitant]
     Active Substance: DIETARY SUPPLEMENT\UBIDECARENONE
  20. MAGNESIUM [Concomitant]
     Active Substance: MAGNESIUM
  21. MOUNJARO [Suspect]
     Active Substance: TIRZEPATIDE
     Indication: Obesity

REACTIONS (8)
  - Bipolar I disorder [None]
  - Condition aggravated [None]
  - Product availability issue [None]
  - Pain [None]
  - Anxiety [None]
  - Social problem [None]
  - Suicidal ideation [None]
  - Impaired work ability [None]

NARRATIVE: CASE EVENT DATE: 20230925
